FAERS Safety Report 12242983 (Version 5)
Quarter: 2016Q4

REPORT INFORMATION
  Report Type: Spontaneous
  Country: US (occurrence: US)
  Receive Date: 20160406
  Receipt Date: 20161220
  Transmission Date: 20170207
  Serious: Yes (Disabling, Other)
  Sender: FDA-Public Use
  Company Number: US-009507513-1604USA000515

PATIENT
  Sex: Male
  Weight: 90.7 kg

DRUGS (1)
  1. PROPECIA [Suspect]
     Active Substance: FINASTERIDE
     Indication: ANDROGENETIC ALOPECIA
     Dosage: 1 MG, QD
     Route: 048
     Dates: start: 200611, end: 200906

REACTIONS (15)
  - Musculoskeletal pain [Not Recovered/Not Resolved]
  - Sexual dysfunction [Not Recovered/Not Resolved]
  - Loss of libido [Unknown]
  - Blood testosterone decreased [Unknown]
  - Sexual dysfunction [Unknown]
  - Testicular disorder [Unknown]
  - Depression [Not Recovered/Not Resolved]
  - Erectile dysfunction [Not Recovered/Not Resolved]
  - Brain injury [Unknown]
  - Amnesia [Unknown]
  - Penile size reduced [Unknown]
  - Sleep apnoea syndrome [Unknown]
  - Thyroid disorder [Unknown]
  - Hormone level abnormal [Unknown]
  - Anxiety [Not Recovered/Not Resolved]

NARRATIVE: CASE EVENT DATE: 2009
